FAERS Safety Report 11308900 (Version 1)
Quarter: 2015Q3

REPORT INFORMATION
  Report Type: Spontaneous
  Country: HR (occurrence: HR)
  Receive Date: 20150724
  Receipt Date: 20150724
  Transmission Date: 20151125
  Serious: Yes (Life-Threatening, Hospitalization, Other)
  Sender: FDA-Public Use
  Company Number: HR-TEVA-580359ISR

PATIENT
  Age: 57 Year
  Sex: Female
  Weight: 91 kg

DRUGS (2)
  1. OXALIPLATIN PLIVA [Suspect]
     Active Substance: OXALIPLATIN
     Indication: COLON CANCER
     Dosage: 170 MILLIGRAM DAILY;
     Route: 041
     Dates: start: 20150630, end: 20150630
  2. NIBEL 5 MG TABLETE [Concomitant]
     Route: 048

REACTIONS (5)
  - Pruritus generalised [Recovered/Resolved]
  - Swollen tongue [Recovered/Resolved]
  - Hypopnoea [Recovered/Resolved]
  - Vomiting [Recovered/Resolved]
  - Bronchospasm [Recovered/Resolved]

NARRATIVE: CASE EVENT DATE: 20150630
